FAERS Safety Report 4639095-9 (Version None)
Quarter: 2005Q2

REPORT INFORMATION
  Report Type: 
  Country: None (occurrence: None)
  Receive Date: 20050418
  Receipt Date: 20050408
  Transmission Date: 20051028
  Serious: Yes (Death, Life-Threatening, Hospitalization, Other)
  Sender: FDA-Public Use
  Company Number: 2005056925

PATIENT
  Age: 51 Year
  Sex: Male
  Weight: 95 kg

DRUGS (17)
  1. ATORVASTATIN CALCIUM [Suspect]
     Indication: MYOCARDIAL INFARCTION
     Dosage: 20 MG, ORAL
     Route: 048
     Dates: start: 20050103, end: 20050109
  2. SIMVASTATIN [Suspect]
     Indication: MYOCARDIAL INFARCTION
     Dosage: ORAL
     Route: 048
     Dates: start: 20041222, end: 20050102
  3. CLAVULIN (AMOXICILLIN TRIHYDRATE, CLAVULANATE POTASSIUM) [Concomitant]
  4. CLOPIDOGREL BISULFATE [Concomitant]
  5. METOPROLOL SUCCINATE [Concomitant]
  6. TORSEMIDE [Concomitant]
  7. SPIRONOLACTONE [Concomitant]
  8. ENALAPRIL MALEATE [Concomitant]
  9. HEPARIN [Concomitant]
  10. SUCRALFATE [Concomitant]
  11. FLUCONAZOLE [Concomitant]
  12. PRIMAXIN [Concomitant]
  13. GENTAMICIN SULFATE [Concomitant]
  14. SUFENTANIL (SUFENTANIL) [Concomitant]
  15. NITRAZEPAM [Concomitant]
  16. INSULIN [Concomitant]
  17. DIPYRONE TAB [Concomitant]

REACTIONS (19)
  - ALANINE AMINOTRANSFERASE INCREASED [None]
  - ANTICHOLINERGIC SYNDROME [None]
  - ANURIA [None]
  - ASPARTATE AMINOTRANSFERASE INCREASED [None]
  - ASPIRATION [None]
  - BLOOD CREATINE PHOSPHOKINASE INCREASED [None]
  - BLOOD LACTATE DEHYDROGENASE INCREASED [None]
  - CANDIDIASIS [None]
  - CARDIAC ARREST [None]
  - COMA [None]
  - HAEMODIALYSIS [None]
  - HYPERKALAEMIA [None]
  - METABOLIC ACIDOSIS [None]
  - NEUROLEPTIC MALIGNANT SYNDROME [None]
  - PNEUMONIA [None]
  - PULMONARY EMBOLISM [None]
  - RENAL FAILURE [None]
  - SHOCK [None]
  - STENT OCCLUSION [None]
